FAERS Safety Report 25293122 (Version 2)
Quarter: 2025Q3

REPORT INFORMATION
  Report Type: Spontaneous
  Country: US (occurrence: US)
  Receive Date: 20250510
  Receipt Date: 20250702
  Transmission Date: 20251021
  Serious: No
  Sender: SANOFI AVENTIS
  Company Number: US-SA-2025SA127525

PATIENT
  Age: 28 Year
  Sex: Female

DRUGS (4)
  1. DUPIXENT [Suspect]
     Active Substance: DUPILUMAB
     Indication: Therapeutic drug monitoring
     Dosage: 300 MG, QOW
     Route: 058
     Dates: start: 202503
  2. DUPIXENT [Suspect]
     Active Substance: DUPILUMAB
     Indication: Dermatitis atopic
  3. DUPIXENT [Suspect]
     Active Substance: DUPILUMAB
     Indication: Gender dysphoria
  4. RINVOQ [Concomitant]
     Active Substance: UPADACITINIB

REACTIONS (5)
  - Allergy to metals [Not Recovered/Not Resolved]
  - Eye pruritus [Unknown]
  - Blepharitis [Unknown]
  - Dermatitis atopic [Not Recovered/Not Resolved]
  - Product use in unapproved indication [Unknown]

NARRATIVE: CASE EVENT DATE: 20250101
